FAERS Safety Report 13346251 (Version 2)
Quarter: 2017Q2

REPORT INFORMATION
  Report Type: Report from Study
  Country: BR (occurrence: BR)
  Receive Date: 20170317
  Receipt Date: 20170413
  Transmission Date: 20170830
  Serious: Yes (Life-Threatening, Disabling, Other)
  Sender: FDA-Public Use
  Company Number: BR-GLAXOSMITHKLINE-BR2017GSK033998

PATIENT
  Sex: Female

DRUGS (1)
  1. BELIMUMAB [Suspect]
     Active Substance: BELIMUMAB
     Indication: SYSTEMIC LUPUS ERYTHEMATOSUS
     Dosage: UNK
     Dates: start: 20151013, end: 20161216

REACTIONS (2)
  - Salivary gland neoplasm [Not Recovered/Not Resolved]
  - Mucoepidermoid carcinoma [Not Recovered/Not Resolved]

NARRATIVE: CASE EVENT DATE: 20170110
